FAERS Safety Report 23481784 (Version 4)
Quarter: 2025Q4

REPORT INFORMATION
  Report Type: Report from Study
  Country: US (occurrence: US)
  Receive Date: 20240205
  Receipt Date: 20251118
  Transmission Date: 20260118
  Serious: No
  Sender: SANDOZ
  Company Number: US-SANDOZ-SDZ2024US007598

PATIENT
  Age: 85 Year
  Sex: Female

DRUGS (6)
  1. OMNITROPE [Suspect]
     Active Substance: SOMATROPIN
     Indication: Product used for unknown indication
     Dosage: 0.3 ML 2 DOSE EVERY N/A N/A
     Route: 058
  2. OMNITROPE [Suspect]
     Active Substance: SOMATROPIN
     Indication: Product used for unknown indication
     Dosage: 0.3 ML 2 DOSE EVERY N/A N/A
     Route: 058
  3. OMNITROPE [Suspect]
     Active Substance: SOMATROPIN
     Dosage: 1.5 MG, QD
     Route: 058
  4. OMNITROPE [Suspect]
     Active Substance: SOMATROPIN
     Dosage: 1.5 MG, QD
     Route: 058
  5. OMNITROPE [Suspect]
     Active Substance: SOMATROPIN
     Indication: Device breakage
     Dosage: 5.8 MG INJECT 0.3MG ML UNDER THE SKIN EVERY DAY
     Route: 058
  6. OMNITROPE [Suspect]
     Active Substance: SOMATROPIN
     Indication: Device breakage
     Dosage: 5.8 MG INJECT 0.3MG ML UNDER THE SKIN EVERY DAY
     Route: 058

REACTIONS (5)
  - Sleep disorder [Unknown]
  - Back pain [Unknown]
  - Headache [Recovering/Resolving]
  - Product dose omission issue [Unknown]
  - Device breakage [Unknown]

NARRATIVE: CASE EVENT DATE: 20251110
